FAERS Safety Report 21560944 (Version 1)
Quarter: 2022Q4

REPORT INFORMATION
  Report Type: Spontaneous
  Country: US (occurrence: None)
  Receive Date: 20221106
  Receipt Date: 20221106
  Transmission Date: 20230113
  Serious: Yes (Other)
  Sender: FDA-Public Use
  Company Number: None

PATIENT
  Age: 53 Year
  Sex: Female
  Weight: 76.05 kg

DRUGS (1)
  1. BEVACIZUMAB [Suspect]
     Active Substance: BEVACIZUMAB
     Indication: Ovarian cancer recurrent
     Dates: start: 20220511, end: 20220913

REACTIONS (2)
  - Brachiocephalic vein thrombosis [None]
  - Superficial vein thrombosis [None]

NARRATIVE: CASE EVENT DATE: 20220624
